FAERS Safety Report 7032284-8 (Version None)
Quarter: 2010Q4

REPORT INFORMATION
  Report Type: 
  Country: None (occurrence: None)
  Receive Date: 20101007
  Receipt Date: 20100708
  Transmission Date: 20110411
  Serious: No
  Sender: FDA-Public Use
  Company Number: A0869233A

PATIENT
  Sex: Male

DRUGS (6)
  1. REQUIP XL [Suspect]
     Indication: PARKINSON'S DISEASE
     Dosage: 4MG FIVE TIMES PER DAY
     Route: 048
     Dates: start: 20100501
  2. ROPINIROLE [Suspect]
     Indication: PARKINSON'S DISEASE
     Dosage: 2MG FIVE TIMES PER DAY
     Route: 048
     Dates: start: 20060101
  3. LEVODOPA [Concomitant]
  4. AZILECT [Concomitant]
  5. ASPIRIN [Concomitant]
  6. MULTI-VITAMIN [Concomitant]

REACTIONS (2)
  - DRUG ADMINISTRATION ERROR [None]
  - MOVEMENT DISORDER [None]
